FAERS Safety Report 9605236 (Version 2)
Quarter: 2013Q4

REPORT INFORMATION
  Report Type: Spontaneous
  Country: US (occurrence: US)
  Receive Date: 20131008
  Receipt Date: 20131125
  Transmission Date: 20140711
  Serious: Yes (Life-Threatening, Hospitalization, Disabling)
  Sender: FDA-Public Use
  Company Number: US-GLAXOSMITHKLINE-A1043904A

PATIENT
  Age: 70 Year
  Sex: Male
  Weight: 90.9 kg

DRUGS (2)
  1. ARIXTRA [Suspect]
     Indication: THROMBOSIS PROPHYLAXIS
     Dosage: 7.5MG PER DAY
     Route: 058
     Dates: start: 201110
  2. UNSPECIFIED MEDICATION [Concomitant]

REACTIONS (4)
  - Myocardial infarction [Recovered/Resolved]
  - Cerebrovascular accident [Recovered/Resolved]
  - Thrombosis [Recovered/Resolved]
  - Off label use [Recovered/Resolved]
